FAERS Safety Report 21644443 (Version 2)
Quarter: 2023Q1

REPORT INFORMATION
  Report Type: Spontaneous
  Country: US (occurrence: US)
  Receive Date: 20221125
  Receipt Date: 20230110
  Transmission Date: 20230418
  Serious: No
  Sender: FDA-Public Use
  Company Number: US-ELI_LILLY_AND_COMPANY-US202207003827

PATIENT
  Sex: Male

DRUGS (7)
  1. ADCIRCA [Suspect]
     Active Substance: TADALAFIL
     Indication: Pulmonary arterial hypertension
     Dosage: 40 MG, DAILY
     Route: 048
     Dates: start: 20191019
  2. ADCIRCA [Suspect]
     Active Substance: TADALAFIL
     Dosage: 40 MG, DAILY
     Route: 048
     Dates: start: 202103
  3. REMODULIN [Suspect]
     Active Substance: TREPROSTINIL
     Indication: Pulmonary arterial hypertension
     Dosage: UNK UNK, OTHER (125NG/KG/MIN, EVERY 48 HOURS)
     Route: 042
     Dates: start: 20220407
  4. REMODULIN [Suspect]
     Active Substance: TREPROSTINIL
     Dosage: 38 ML, OTHER (38ML/HR)
     Route: 042
  5. REMODULIN [Suspect]
     Active Substance: TREPROSTINIL
     Dosage: 37 ML, OTHER (37ML/HR)
     Route: 042
  6. REMODULIN [Suspect]
     Active Substance: TREPROSTINIL
     Dosage: 81NG/KG/MIN
     Route: 065
  7. REMODULIN [Suspect]
     Active Substance: TREPROSTINIL
     Dosage: 3 TO 4NG/KG/MIN, EVERY 2 DAYS
     Route: 065

REACTIONS (2)
  - Fluid retention [Not Recovered/Not Resolved]
  - Diarrhoea [Recovering/Resolving]
